FAERS Safety Report 4582201-5 (Version None)
Quarter: 2005Q1

REPORT INFORMATION
  Report Type: 
  Country: None (occurrence: None)
  Receive Date: 20050214
  Receipt Date: 20050209
  Transmission Date: 20050727
  Serious: Yes (Other)
  Sender: FDA-Public Use
  Company Number: 004122

PATIENT
  Age: 62 Year
  Sex: Female

DRUGS (4)
  1. MEDROXYPROGESTERONE ACETATE [Suspect]
     Dosage: ORAL
     Route: 048
     Dates: start: 19850101, end: 19960101
  2. PROVERA [Suspect]
     Dosage: ORAL
     Route: 048
     Dates: start: 19850101, end: 19960101
  3. PREMARIN [Suspect]
     Dosage: ORAL
     Route: 048
     Dates: start: 19850101, end: 19960101
  4. PREMPRO [Suspect]
     Dosage: ORAL
     Route: 048
     Dates: start: 19960101, end: 20030101

REACTIONS (1)
  - BREAST CANCER FEMALE [None]
